FAERS Safety Report 17307207 (Version 1)
Quarter: 2020Q1

REPORT INFORMATION
  Report Type: Spontaneous
  Country: GB (occurrence: GB)
  Receive Date: 20200123
  Receipt Date: 20200123
  Transmission Date: 20200409
  Serious: Yes (Other)
  Sender: FDA-Public Use
  Company Number: GB-TEVA-2020-GB-1171709

PATIENT
  Age: 60 Year
  Sex: Female
  Weight: 78.92 kg

DRUGS (3)
  1. DECONGESTANT NOS [Concomitant]
  2. METRONIDAZOLE. [Suspect]
     Active Substance: METRONIDAZOLE
     Indication: TOOTHACHE
     Dosage: 1200 MG
     Route: 048
     Dates: start: 20191220, end: 20191223
  3. PARACETAMOL [Concomitant]
     Active Substance: ACETAMINOPHEN

REACTIONS (8)
  - Feeling cold [Recovered/Resolved]
  - Chills [Recovered/Resolved]
  - Dyspepsia [Not Recovered/Not Resolved]
  - Vomiting [Recovering/Resolving]
  - Dizziness [Recovered/Resolved]
  - Decreased appetite [Recovering/Resolving]
  - Chromaturia [Recovered/Resolved]
  - Fatigue [Recovered/Resolved]

NARRATIVE: CASE EVENT DATE: 20191220
